FAERS Safety Report 7279639-4 (Version None)
Quarter: 2011Q1

REPORT INFORMATION
  Report Type: 
  Country: None (occurrence: None)
  Receive Date: 20110203
  Receipt Date: 20110203
  Transmission Date: 20110831
  Serious: No
  Sender: FDA-Public Use
  Company Number: None

PATIENT
  Sex: Male
  Weight: 101.51 kg

DRUGS (3)
  1. CALCIUM CARBONATE [Suspect]
     Dosage: 42000 MG
  2. VITAMIN D [Suspect]
     Dosage: 140000 MG
  3. ZOMETA [Suspect]

REACTIONS (1)
  - OSTEONECROSIS OF JAW [None]
